FAERS Safety Report 4490901-0 (Version None)
Quarter: 2004Q4

REPORT INFORMATION
  Report Type: 
  Country: None (occurrence: None)
  Receive Date: 20041028
  Receipt Date: 20041014
  Transmission Date: 20050328
  Serious: Yes (Hospitalization)
  Sender: FDA-Public Use
  Company Number: 2004-BP-08924BP

PATIENT
  Age: 81 Year
  Sex: Female
  Weight: 48.1 kg

DRUGS (9)
  1. MOBIC [Suspect]
     Indication: ARTHRALGIA
     Dosage: 7.5 MG (7.5 MG), PO
     Route: 048
     Dates: start: 20020101, end: 20040926
  2. MOBIC [Suspect]
     Indication: BONE PAIN
     Dosage: 7.5 MG (7.5 MG), PO
     Route: 048
     Dates: start: 20020101, end: 20040926
  3. MOBIC [Suspect]
     Indication: LOCALISED OSTEOARTHRITIS
     Dosage: 7.5 MG (7.5 MG), PO
     Route: 048
     Dates: start: 20020101, end: 20040926
  4. RYTHMARONE (AMIODARONE HYDROCHLORIDE) [Concomitant]
  5. ACTONEL [Concomitant]
  6. PREMARIN [Concomitant]
  7. RYTHMOL [Concomitant]
  8. ALTOPREV [Concomitant]
  9. ACEON [Concomitant]

REACTIONS (4)
  - ATRIAL FIBRILLATION [None]
  - GASTRIC ULCER HAEMORRHAGE [None]
  - GASTRITIS [None]
  - OESOPHAGITIS [None]
